FAERS Safety Report 24140368 (Version 2)
Quarter: 2024Q3

REPORT INFORMATION
  Report Type: Spontaneous
  Country: CZ (occurrence: CZ)
  Receive Date: 20240726
  Receipt Date: 20240822
  Transmission Date: 20241016
  Serious: Yes (Hospitalization, Other)
  Sender: SANOFI AVENTIS
  Company Number: CZ-SA-SAC20240719001024

PATIENT
  Age: 71 Year
  Sex: Female

DRUGS (2)
  1. AVALGLUCOSIDASE ALFA [Suspect]
     Active Substance: AVALGLUCOSIDASE ALFA
     Dosage: 21 MG/KG, QOW
     Route: 042
     Dates: end: 20240603
  2. AVALGLUCOSIDASE ALFA [Suspect]
     Active Substance: AVALGLUCOSIDASE ALFA
     Dosage: 21 MG/KG, QOW
     Route: 042
     Dates: start: 20240807

REACTIONS (5)
  - Endometrial cancer recurrent [Unknown]
  - Pneumonia aspiration [Unknown]
  - Cardiac arrest [Unknown]
  - Respiratory arrest [Unknown]
  - Pulmonary embolism [Recovering/Resolving]

NARRATIVE: CASE EVENT DATE: 20240702
